FAERS Safety Report 20016168 (Version 1)
Quarter: 2021Q4

REPORT INFORMATION
  Report Type: Spontaneous
  Country: US (occurrence: None)
  Receive Date: 20211102
  Receipt Date: 20211102
  Transmission Date: 20220304
  Serious: Yes (Death)
  Sender: FDA-Public Use
  Company Number: None

PATIENT
  Age: 73 Year
  Sex: Male

DRUGS (22)
  1. ABIRATERONE [Suspect]
     Active Substance: ABIRATERONE
     Indication: Renal transplant
     Dosage: FREQUENCY : DAILY;?
     Route: 048
     Dates: start: 20181219
  2. PREDNISONE [Concomitant]
     Active Substance: PREDNISONE
  3. ACETAMINOPHEN\OXYCODONE HYDROCHLORIDE [Concomitant]
     Active Substance: ACETAMINOPHEN\OXYCODONE HYDROCHLORIDE
  4. AMLODIPINE [Concomitant]
     Active Substance: AMLODIPINE BESYLATE
  5. JANUVIA [Concomitant]
     Active Substance: SITAGLIPTIN PHOSPHATE
  6. ALLOPURINOL [Concomitant]
     Active Substance: ALLOPURINOL
  7. OMEPRAZOLE [Concomitant]
     Active Substance: OMEPRAZOLE
  8. METFORMIN [Concomitant]
     Active Substance: METFORMIN HYDROCHLORIDE
  9. BICALUTAMIDE [Concomitant]
     Active Substance: BICALUTAMIDE
  10. ASPIRIN [Concomitant]
     Active Substance: ASPIRIN
  11. CALCIUM [Concomitant]
     Active Substance: CALCIUM
  12. BACLOFEN [Concomitant]
     Active Substance: BACLOFEN
  13. DOXYCYCLINE [Concomitant]
     Active Substance: DOXYCYCLINE
  14. AMBIEN [Concomitant]
     Active Substance: ZOLPIDEM TARTRATE
  15. ZYRTEC [Concomitant]
     Active Substance: CETIRIZINE HYDROCHLORIDE
  16. IRON [Concomitant]
     Active Substance: IRON
  17. TESSALON [Concomitant]
     Active Substance: BENZONATATE
  18. MACROBID [Concomitant]
     Active Substance: NITROFURANTOIN\NITROFURANTOIN MONOHYDRATE
  19. VANCOMYCIN [Concomitant]
     Active Substance: VANCOMYCIN
  20. CLONIDINE [Concomitant]
     Active Substance: CLONIDINE
  21. CIPRO [Concomitant]
     Active Substance: CIPROFLOXACIN HYDROCHLORIDE
  22. ISOSORBIDE [Concomitant]
     Active Substance: ISOSORBIDE

REACTIONS (1)
  - Death [None]

NARRATIVE: CASE EVENT DATE: 20211102
